FAERS Safety Report 12834208 (Version 1)
Quarter: 2016Q4

REPORT INFORMATION
  Report Type: Spontaneous
  Country: US (occurrence: US)
  Receive Date: 20161010
  Receipt Date: 20161010
  Transmission Date: 20170207
  Serious: No
  Sender: FDA-Public Use
  Company Number: US-BAYER-2016-194714

PATIENT
  Age: 59 Year
  Sex: Male
  Weight: 88.44 kg

DRUGS (4)
  1. ALEVE [Suspect]
     Active Substance: NAPROXEN SODIUM
     Indication: SCOLIOSIS
     Dosage: 1-2 DF A DAY (4-5 DAYS A WEEK)
     Dates: start: 201608
  2. FISH OIL [Concomitant]
     Active Substance: FISH OIL
  3. ASPIRIN. [Concomitant]
     Active Substance: ASPIRIN
     Dosage: 81 MG, UNK
  4. ALEVE [Suspect]
     Active Substance: NAPROXEN SODIUM
     Indication: BACK PAIN
     Dosage: UNK
     Route: 048

REACTIONS (1)
  - Product use issue [None]

NARRATIVE: CASE EVENT DATE: 201608
